FAERS Safety Report 10243537 (Version 1)
Quarter: 2014Q2

REPORT INFORMATION
  Report Type: Spontaneous
  Country: US (occurrence: US)
  Receive Date: 20140618
  Receipt Date: 20140618
  Transmission Date: 20141212
  Serious: No
  Sender: FDA-Public Use
  Company Number: US-ASTRAZENECA-2014SE39943

PATIENT
  Age: 779 Month
  Sex: Male
  Weight: 97.5 kg

DRUGS (5)
  1. NEXIUM [Suspect]
     Indication: GASTROOESOPHAGEAL REFLUX DISEASE
     Route: 048
     Dates: start: 2006, end: 20140601
  2. NEXIUM 24HR [Suspect]
     Indication: GASTROOESOPHAGEAL REFLUX DISEASE
     Route: 048
     Dates: start: 20140602
  3. BLOOD PRESSURE MEDICATION [Concomitant]
  4. ANXIETY MEDICATION [Concomitant]
  5. DIABETES MEDICATION [Concomitant]

REACTIONS (2)
  - Dyspepsia [Unknown]
  - Drug ineffective [Unknown]
